FAERS Safety Report 7802260-3 (Version None)
Quarter: 2011Q4

REPORT INFORMATION
  Report Type: 
  Country: None (occurrence: None)
  Receive Date: 20111005
  Receipt Date: 20110927
  Transmission Date: 20120403
  Serious: Yes (Other)
  Sender: FDA-Public Use
  Company Number: AXC-2011-000258

PATIENT
  Age: 67 Year
  Sex: Male

DRUGS (2)
  1. PHOTOFRIN [Suspect]
     Indication: OESOPHAGEAL CARCINOMA
     Dosage: 2 MG/KG, SINGLE, INTRAVENOUS
     Route: 042
  2. BETA BLOCKING AGENTS AND OTHER ANTIHYPERTENSION [Concomitant]

REACTIONS (5)
  - OESOPHAGEAL ULCER [None]
  - RADIATION DYSPHAGIA [None]
  - OESOPHAGEAL STENOSIS [None]
  - NECROSIS [None]
  - RADIATION OESOPHAGITIS [None]
